FAERS Safety Report 9927340 (Version 1)
Quarter: 2014Q1

REPORT INFORMATION
  Report Type: Spontaneous
  Country: US (occurrence: US)
  Receive Date: 20140226
  Receipt Date: 20140226
  Transmission Date: 20141002
  Serious: No
  Sender: FDA-Public Use
  Company Number: US-GILEAD-2014-0095077

PATIENT
  Sex: Male

DRUGS (3)
  1. SOVALDI [Suspect]
     Indication: CHRONIC HEPATITIS C
     Dosage: 400 MG, UNK
     Route: 065
  2. PEGINTERFERON [Suspect]
     Indication: CHRONIC HEPATITIS C
     Route: 058
  3. RIBAVIRIN [Concomitant]

REACTIONS (6)
  - Palpitations [Unknown]
  - Feeling jittery [Unknown]
  - Lethargy [Unknown]
  - Pain [Unknown]
  - Insomnia [Unknown]
  - Dyspnoea [Unknown]
